FAERS Safety Report 9180901 (Version 1)
Quarter: 2013Q1

REPORT INFORMATION
  Report Type: Spontaneous
  Country: PK (occurrence: PK)
  Receive Date: 20130322
  Receipt Date: 20130322
  Transmission Date: 20140127
  Serious: Yes (Death)
  Sender: FDA-Public Use
  Company Number: PHHY2013PK028014

PATIENT
  Age: 90 Year
  Sex: Male
  Weight: 50 kg

DRUGS (1)
  1. CO-DIOVAN [Suspect]
     Indication: HYPERTENSION
     Dosage: ONCE DAILY (160 MG VALS AND 12.5 MG HYDR)
     Route: 048
     Dates: start: 20110910, end: 20120610

REACTIONS (1)
  - Death [Fatal]
